FAERS Safety Report 26109811 (Version 1)
Quarter: 2025Q4

REPORT INFORMATION
  Report Type: Spontaneous
  Country: US (occurrence: US)
  Receive Date: 20251201
  Receipt Date: 20251201
  Transmission Date: 20260117
  Serious: No
  Sender: CHIMERIX
  Company Number: US-CHIMERIX-US-CHI-25-000283

PATIENT
  Age: 10 Year
  Sex: Male

DRUGS (1)
  1. MODEYSO [Suspect]
     Active Substance: DORDAVIPRONE
     Indication: Brain stem glioma
     Dosage: 500 MILLIGRAM, WEEKLY
     Route: 048
     Dates: start: 20250909, end: 20251023

REACTIONS (1)
  - Product temperature excursion issue [Recovered/Resolved]

NARRATIVE: CASE EVENT DATE: 20250901
